FAERS Safety Report 7246527-9 (Version None)
Quarter: 2011Q1

REPORT INFORMATION
  Report Type: 
  Country: None (occurrence: None)
  Receive Date: 20110127
  Receipt Date: 20110120
  Transmission Date: 20110831
  Serious: Yes (Other)
  Sender: FDA-Public Use
  Company Number: AR-AMGEN-ARGSP2011002835

PATIENT
  Age: 78 Year
  Sex: Female
  Weight: 48 kg

DRUGS (9)
  1. AMIODARONE [Concomitant]
     Indication: HYPERTENSION
     Dosage: 1 DF, 1X/DAY
  2. CALCIUM [Concomitant]
     Indication: OSTEOPOROSIS
     Dosage: UNK
  3. AMLODIPINE BESYLATE [Concomitant]
     Indication: HYPERTENSION
     Dosage: 5 MG, 1X/DAY
     Route: 048
  4. SPIRONOLACTONE [Concomitant]
     Indication: HYPERTENSION
     Dosage: 25 MG, 1X/DAY
     Route: 048
  5. LEFLUNOMIDE [Concomitant]
     Indication: RHEUMATOID ARTHRITIS
     Dosage: 20 MG, 1X/DAY
     Route: 048
  6. RANITIDINE [Concomitant]
     Dosage: 300 MG, 1X/DAY
     Route: 048
  7. ENBREL [Suspect]
     Indication: RHEUMATOID ARTHRITIS
     Dosage: 25 MG, 2 DOSES PER WEEK
     Route: 058
     Dates: start: 20060901
  8. LOSARTAN [Concomitant]
     Indication: HYPERTENSION
     Dosage: 5 MG, 1X/DAY
     Route: 048
  9. ENBREL [Suspect]
     Dosage: 25 MG, WEEKLY

REACTIONS (1)
  - RENAL IMPAIRMENT [None]
